FAERS Safety Report 5034797-7 (Version None)
Quarter: 2006Q2

REPORT INFORMATION
  Report Type: 
  Country: None (occurrence: None)
  Receive Date: 20060509
  Receipt Date: 20050613
  Transmission Date: 20061013
  Serious: Yes (Other)
  Sender: FDA-Public Use
  Company Number: 407778

PATIENT
  Sex: Female

DRUGS (3)
  1. NAPROSYN [Suspect]
     Indication: DRUG USE FOR UNKNOWN INDICATION
     Dosage: ORAL
  2. AVANDIA [Concomitant]
  3. TYLENOL ARTHRITIS (ACETAMINOPHEN) [Concomitant]

REACTIONS (1)
  - ULCER [None]
